FAERS Safety Report 12236322 (Version 2)
Quarter: 2016Q3

REPORT INFORMATION
  Report Type: Spontaneous
  Country: US (occurrence: US)
  Receive Date: 20160404
  Receipt Date: 20160712
  Transmission Date: 20161109
  Serious: Yes (Hospitalization, Disabling, Other)
  Sender: FDA-Public Use
  Company Number: US-CELGENEUS-USA-2016010801

PATIENT
  Age: 76 Year
  Sex: Female

DRUGS (6)
  1. INSULIN [Concomitant]
     Active Substance: INSULIN NOS
     Indication: DIABETES MELLITUS
     Dosage: 32 UNITS
     Route: 058
  2. THALOMID [Suspect]
     Active Substance: THALIDOMIDE
     Indication: GASTROINTESTINAL HAEMORRHAGE
     Dosage: 100 MILLIGRAM
     Route: 048
     Dates: start: 20151120, end: 20160101
  3. LOSARTAN. [Concomitant]
     Active Substance: LOSARTAN
     Indication: HYPOTENSION
     Route: 048
     Dates: start: 2014
  4. FERROUS GLUCONATE [Concomitant]
     Active Substance: FERROUS GLUCONATE
     Indication: ANAEMIA
     Route: 048
     Dates: start: 2011
  5. OCTREOTIDE. [Concomitant]
     Active Substance: OCTREOTIDE
     Indication: ARTERIOVENOUS MALFORMATION
     Dosage: 100 UNITS
     Route: 058
     Dates: start: 20150720
  6. OMEPRAZOLE. [Concomitant]
     Active Substance: OMEPRAZOLE
     Indication: GASTROOESOPHAGEAL REFLUX DISEASE
     Dosage: 100 MILLIGRAM
     Route: 048
     Dates: start: 20150919

REACTIONS (2)
  - Anaemia [Not Recovered/Not Resolved]
  - Malaise [Recovered/Resolved]

NARRATIVE: CASE EVENT DATE: 20151226
